FAERS Safety Report 7892501 (Version 4)
Quarter: 2014Q1

REPORT INFORMATION
  Report Type: Spontaneous
  Country: US (occurrence: US)
  Receive Date: 20110411
  Receipt Date: 20140129
  Transmission Date: 20141002
  Serious: Yes (Other)
  Sender: FDA-Public Use
  Company Number: US-BAYER-201042058NA

PATIENT
  Age: 18 Year
  Sex: Female
  Weight: 96 kg

DRUGS (25)
  1. YAZ [Suspect]
     Indication: CONTRACEPTION
     Dosage: UNK
     Dates: start: 20090304, end: 20091230
  2. YAZ [Suspect]
     Indication: ACNE
  3. YAZ [Suspect]
     Indication: PREMENSTRUAL DYSPHORIC DISORDER
  4. YASMIN [Suspect]
     Indication: CONTRACEPTION
     Dosage: UNK
     Route: 048
     Dates: start: 20070402, end: 20080813
  5. YASMIN [Suspect]
     Indication: ACNE
  6. YASMIN [Suspect]
     Indication: PREMENSTRUAL DYSPHORIC DISORDER
  7. OCELLA [Suspect]
     Indication: ACNE
     Dosage: UNK UNK, QD
     Route: 048
     Dates: start: 20080813, end: 20090204
  8. OCELLA [Suspect]
     Indication: CONTRACEPTION
  9. OCELLA [Suspect]
     Indication: PREMENSTRUAL DYSPHORIC DISORDER
  10. SCOPOLAMINE [Concomitant]
  11. AMOXICILLIN [Concomitant]
  12. BENTYL [Concomitant]
     Dosage: UNK UNK, TID
  13. CLARITHROMYCIN [Concomitant]
     Dosage: UNK UNK, BID
  14. DIFLUCAN [Concomitant]
     Dosage: UNK
     Route: 048
  15. LORTAB [Concomitant]
     Dosage: UNK UNK, BID
  16. OMEPRAZOLE [Concomitant]
     Dosage: UNK UNK, BID
  17. PROMETHAZINE [Concomitant]
     Indication: VOMITING
     Dosage: UNK
     Route: 048
  18. ATIVAN [Concomitant]
  19. ZOFRAN [Concomitant]
  20. PAMINE FORTE [Concomitant]
  21. FLEXERIL [Concomitant]
  22. SEPTRA DS [Concomitant]
  23. NEURONTIN [Concomitant]
  24. PHENERGAN [Concomitant]
  25. GARAMYCIN [Concomitant]

REACTIONS (5)
  - Cholecystectomy [Unknown]
  - Cholecystitis [None]
  - Gallbladder disorder [None]
  - Abdominal pain [None]
  - Biliary dyskinesia [None]
